FAERS Safety Report 8499734-1 (Version None)
Quarter: 2012Q3

REPORT INFORMATION
  Report Type: 
  Country: None (occurrence: None)
  Receive Date: 20120703
  Receipt Date: 20120703
  Transmission Date: 20120928
  Serious: Yes (Other)
  Sender: FDA-Public Use
  Company Number: None

PATIENT
  Age: 37 Year
  Sex: Female

DRUGS (2)
  1. LUPRON DEPOT [Suspect]
     Indication: ENDOMETRIOSIS
     Dosage: 3.75MG QMONTH IM
     Route: 030
     Dates: start: 20120430, end: 20120606
  2. LUPRON DEPOT [Suspect]
     Indication: ENDOMETRIOSIS
     Dosage: 3.75MG QMONTH IM
     Route: 030
     Dates: start: 20061229, end: 20070523

REACTIONS (5)
  - TACHYCARDIA [None]
  - HYPERHIDROSIS [None]
  - DIZZINESS [None]
  - HOT FLUSH [None]
  - NAUSEA [None]
